FAERS Safety Report 10437226 (Version 1)
Quarter: 2014Q3

REPORT INFORMATION
  Report Type: Spontaneous
  Country: GB (occurrence: GB)
  Receive Date: 20140908
  Receipt Date: 20140908
  Transmission Date: 20150326
  Serious: Yes (Other)
  Sender: FDA-Public Use
  Company Number: GB-GLAXOSMITHKLINE-B1023591A

PATIENT
  Sex: Male
  Weight: 72 kg

DRUGS (1)
  1. NIQUITIN [Suspect]
     Active Substance: NICOTINE
     Indication: EX-TOBACCO USER
     Route: 065

REACTIONS (2)
  - Chills [Recovered/Resolved]
  - Cholinergic syndrome [Recovered/Resolved]
